FAERS Safety Report 15687864 (Version 1)
Quarter: 2018Q4

REPORT INFORMATION
  Report Type: Spontaneous
  Country: US (occurrence: US)
  Receive Date: 20181205
  Receipt Date: 20181205
  Transmission Date: 20190205
  Serious: No
  Sender: FDA-Public Use
  Company Number: US-ROCHE-2091614

PATIENT
  Age: 75 Year
  Sex: Female
  Weight: 69.46 kg

DRUGS (1)
  1. VALIUM [Suspect]
     Active Substance: DIAZEPAM
     Indication: ANXIETY
     Dosage: 1/2 TABLET IN THE MORNING, 1/2 TABLET AT NIGHT
     Route: 048

REACTIONS (7)
  - Insomnia [Not Recovered/Not Resolved]
  - Joint range of motion decreased [Unknown]
  - Fall [Unknown]
  - Ear pain [Not Recovered/Not Resolved]
  - Hypertension [Unknown]
  - Hallucination, visual [Not Recovered/Not Resolved]
  - Sensory disturbance [Not Recovered/Not Resolved]

NARRATIVE: CASE EVENT DATE: 2017
